FAERS Safety Report 4705140-5 (Version None)
Quarter: 2005Q2

REPORT INFORMATION
  Report Type: 
  Country: None (occurrence: None)
  Receive Date: 20050629
  Receipt Date: 20050613
  Transmission Date: 20051028
  Serious: Yes (Hospitalization)
  Sender: FDA-Public Use
  Company Number: 2005-BP-10126RO

PATIENT
  Age: 6 Month
  Sex: Female
  Weight: 5.5 kg

DRUGS (2)
  1. METHADONE HCL [Suspect]
     Dosage: 0.1 MG BID (SEE TEXT, 2 IN 1 D), PO
     Route: 048
     Dates: start: 20050401
  2. INTERFERON ALFA (INTERFERON ALFA) [Concomitant]

REACTIONS (1)
  - RESPIRATORY ALKALOSIS [None]
